FAERS Safety Report 8585729 (Version 4)
Quarter: 2012Q4

REPORT INFORMATION
  Report Type: 
  Country: BR (occurrence: BR)
  Receive Date: 20120530
  Receipt Date: 20121108
  Transmission Date: 20130627
  Serious: Yes (Death, Hospitalization)
  Sender: FDA-Public Use
  Company Number: BR-SANOFI-AVENTIS-2012SA036097

PATIENT
  Age: 43 Year
  Sex: Female

DRUGS (3)
  1. ELOXATIN [Suspect]
     Indication: ADENOCARCINOMA OF COLON STAGE III
     Dosage: 12 cycles
     Route: 065
     Dates: end: 20120425
  2. 5-FU [Concomitant]
     Indication: ADENOCARCINOMA OF COLON STAGE III
     Dosage: 12 cycles
     Dates: end: 20120425
  3. LEUCOVORIN [Concomitant]
     Indication: ADENOCARCINOMA OF COLON STAGE III
     Dosage: 12 cycles
     Dates: end: 20120425

REACTIONS (4)
  - Organising pneumonia [Fatal]
  - Influenza [Fatal]
  - Respiratory disorder [Fatal]
  - Respiratory failure [Fatal]
